FAERS Safety Report 22385762 (Version 1)
Quarter: 2023Q2

REPORT INFORMATION
  Report Type: Spontaneous
  Country: US (occurrence: None)
  Receive Date: 20230524
  Receipt Date: 20230524
  Transmission Date: 20230722
  Serious: No
  Sender: FDA-Public Use
  Company Number: None

PATIENT
  Age: 55 Year
  Sex: Female
  Weight: 119.29 kg

DRUGS (3)
  1. RINVOQ [Suspect]
     Active Substance: UPADACITINIB
     Indication: Rheumatoid arthritis
     Dosage: FREQUENCY : DAILY;?
     Route: 048
     Dates: start: 202303
  2. XELJANZ [Suspect]
     Active Substance: TOFACITINIB CITRATE
  3. RINVOQ [Suspect]
     Active Substance: UPADACITINIB
     Indication: Osteoarthritis

REACTIONS (3)
  - Urinary tract infection [None]
  - Weight increased [None]
  - Sternal fracture [None]
